FAERS Safety Report 6137386-6 (Version None)
Quarter: 2009Q1

REPORT INFORMATION
  Report Type: 
  Country: None (occurrence: None)
  Receive Date: 20090330
  Receipt Date: 20090320
  Transmission Date: 20090719
  Serious: Yes (Other)
  Sender: FDA-Public Use
  Company Number: AU-ABBOTT-09P-008-0557823-00

PATIENT
  Sex: Female

DRUGS (1)
  1. LIPIDIL [Suspect]
     Indication: LIPIDS ABNORMAL
     Route: 048
     Dates: start: 20080912, end: 20081111

REACTIONS (4)
  - BLOOD CHOLESTEROL INCREASED [None]
  - BLOOD TRIGLYCERIDES INCREASED [None]
  - HIGH DENSITY LIPOPROTEIN DECREASED [None]
  - RENAL IMPAIRMENT [None]
